FAERS Safety Report 18510912 (Version 1)
Quarter: 2020Q4

REPORT INFORMATION
  Report Type: Spontaneous
  Country: IT (occurrence: IT)
  Receive Date: 20201117
  Receipt Date: 20201117
  Transmission Date: 20210114
  Serious: Yes (Other)
  Sender: FDA-Public Use
  Company Number: IT-VELOXIS PHARMACEUTICALS-2020VELIT-000947

PATIENT

DRUGS (3)
  1. ENVARSUS XR [Suspect]
     Active Substance: TACROLIMUS
     Indication: IMMUNOSUPPRESSANT DRUG THERAPY
     Dosage: UNK
     Route: 065
  2. SIROLIMUS. [Interacting]
     Active Substance: SIROLIMUS
     Indication: IMMUNOSUPPRESSANT DRUG THERAPY
     Dosage: UNK
     Route: 065
  3. REGORAFENIB. [Interacting]
     Active Substance: REGORAFENIB
     Indication: HEPATOCELLULAR CARCINOMA
     Dosage: 160 MILLIGRAM, QD
     Route: 048

REACTIONS (5)
  - Drug interaction [Unknown]
  - Drug interaction [Recovered/Resolved]
  - Drug level increased [Unknown]
  - Hepatotoxicity [Recovered/Resolved]
  - Off label use [Unknown]
